FAERS Safety Report 5523303-6 (Version None)
Quarter: 2007Q4

REPORT INFORMATION
  Report Type: 
  Country: None (occurrence: None)
  Receive Date: 20071121
  Receipt Date: 20071120
  Transmission Date: 20080405
  Serious: Yes (Other)
  Sender: FDA-Public Use
  Company Number: A0685585A

PATIENT
  Age: 75 Year
  Sex: Female

DRUGS (2)
  1. ALLI [Suspect]
     Indication: WEIGHT LOSS DIET
     Route: 048
     Dates: start: 20070801, end: 20070901
  2. PRILOSEC [Concomitant]

REACTIONS (2)
  - GASTRIC ULCER [None]
  - PHARMACEUTICAL PRODUCT COMPLAINT [None]
